FAERS Safety Report 9350672 (Version 2)
Quarter: 2013Q2

REPORT INFORMATION
  Report Type: Spontaneous
  Country: US (occurrence: US)
  Receive Date: 20130617
  Receipt Date: 20130628
  Transmission Date: 20140414
  Serious: Yes (Other)
  Sender: FDA-Public Use
  Company Number: PHEH2013US012798

PATIENT
  Age: 56 Year
  Sex: Female

DRUGS (6)
  1. TEKTURNA [Suspect]
     Indication: HYPERTENSION
     Dosage: 300 MG, DAILY
     Route: 048
     Dates: start: 20101022
  2. LOSARTAN [Concomitant]
     Dosage: 100 MG, UNK
  3. COZAAR [Concomitant]
     Indication: HYPERTENSION
     Dosage: 100 MG, UNK
     Route: 048
  4. CELEBREX [Concomitant]
     Indication: ARTHRITIS
     Dosage: 200 MG, BID
     Route: 048
  5. EFFEXOR [Concomitant]
     Indication: DEPRESSION
     Dosage: 225 MG, DAILY
     Route: 048
     Dates: start: 20061016
  6. MAXZIDE [Concomitant]
     Indication: HYPERTENSION
     Dosage: 25 MG, DAILY
     Route: 048
     Dates: start: 20110105

REACTIONS (3)
  - Systemic lupus erythematosus [Unknown]
  - Costochondritis [Unknown]
  - Stress [Unknown]
